FAERS Safety Report 9117847 (Version 4)
Quarter: 2013Q2

REPORT INFORMATION
  Report Type: Spontaneous
  Country: US (occurrence: US)
  Receive Date: 20130225
  Receipt Date: 20130524
  Transmission Date: 20140414
  Serious: Yes (Other)
  Sender: FDA-Public Use
  Company Number: US-009507513-1302USA009494

PATIENT
  Age: 73 Year
  Sex: Female

DRUGS (5)
  1. BOCEPREVIR [Suspect]
     Indication: CHRONIC HEPATITIS C
     Dosage: 4 DF, QD
     Route: 048
     Dates: start: 20130212, end: 20130315
  2. PEGASYS [Suspect]
     Indication: CHRONIC HEPATITIS C
     Dosage: 180 MICROGRAM, QW
     Dates: start: 20130114
  3. PEGASYS [Suspect]
     Dosage: 90 MICROGRAM, QW
     Dates: end: 20130508
  4. RIBASPHERE [Suspect]
     Indication: CHRONIC HEPATITIS C
     Dosage: 1000 MG PER DAY
     Dates: start: 20130114, end: 20130315
  5. RIBASPHERE [Suspect]
     Dosage: 600 MG, QD
     Dates: start: 20130319, end: 20130508

REACTIONS (15)
  - Anaemia [Unknown]
  - Feeling hot [Unknown]
  - Viral load decreased [Unknown]
  - Palpitations [Unknown]
  - White blood cell count decreased [Unknown]
  - Swelling face [Unknown]
  - Dyspnoea [Unknown]
  - Weight decreased [Unknown]
  - Rash [Unknown]
  - Platelet count decreased [Unknown]
  - Red blood cell count decreased [Unknown]
  - Fatigue [Unknown]
  - Dry mouth [Unknown]
  - Decreased appetite [Unknown]
  - Haemoglobin decreased [Unknown]
